FAERS Safety Report 21388920 (Version 1)
Quarter: 2022Q3

REPORT INFORMATION
  Report Type: Spontaneous
  Country: US (occurrence: US)
  Receive Date: 20220929
  Receipt Date: 20220929
  Transmission Date: 20221026
  Serious: Yes (Other)
  Sender: FDA-Public Use
  Company Number: US-HETERO-HET2022US02372

PATIENT
  Age: 26 Year
  Sex: Male

DRUGS (11)
  1. LITHIUM [Suspect]
     Active Substance: LITHIUM
     Indication: Bipolar disorder
     Route: 065
  2. ARIPIPRAZOLE [Suspect]
     Active Substance: ARIPIPRAZOLE
     Indication: Bipolar disorder
     Dosage: 2 MG, BID
     Route: 065
  3. OLANZAPINE [Suspect]
     Active Substance: OLANZAPINE
     Indication: Bipolar disorder
     Dosage: 20 MG BY MOUTH IN THE MORNING
     Route: 048
  4. RISPERIDONE [Suspect]
     Active Substance: RISPERIDONE
     Indication: Bipolar disorder
     Dosage: UNK
     Route: 065
  5. FLUPHENAZINE [Suspect]
     Active Substance: FLUPHENAZINE
     Indication: Bipolar disorder
     Dosage: UNK
     Route: 065
  6. CLONAZEPAM [Concomitant]
     Active Substance: CLONAZEPAM
     Indication: Bipolar disorder
     Dosage: 1 MG IN THE MORNING
     Route: 065
  7. CLONAZEPAM [Concomitant]
     Active Substance: CLONAZEPAM
     Dosage: 2 MG AT BEDTIME
     Route: 065
  8. PRAZOSIN [Concomitant]
     Active Substance: PRAZOSIN
     Indication: Bipolar disorder
     Dosage: 1 MG, TID
     Route: 065
  9. CHLORPROMAZINE [Concomitant]
     Active Substance: CHLORPROMAZINE
     Indication: Bipolar disorder
     Dosage: 100 MG
     Route: 030
  10. LORAZEPAM [Concomitant]
     Active Substance: LORAZEPAM
     Indication: Neuroleptic malignant syndrome
     Dosage: 2 MG, TID
     Route: 065
  11. VALPROIC ACID [Concomitant]
     Active Substance: VALPROIC ACID
     Indication: Neuroleptic malignant syndrome
     Dosage: 500 MG, BID
     Route: 065

REACTIONS (1)
  - Rhabdomyolysis [Recovered/Resolved]
